FAERS Safety Report 20554696 (Version 4)
Quarter: 2022Q2

REPORT INFORMATION
  Report Type: Report from Study
  Country: CN (occurrence: CN)
  Receive Date: 20220304
  Receipt Date: 20220622
  Transmission Date: 20220721
  Serious: Yes (Hospitalization)
  Sender: FDA-Public Use
  Company Number: CN-JNJFOC-20220301621

PATIENT
  Age: 69 Year
  Sex: Male
  Weight: 76.5 kg

DRUGS (17)
  1. AMIVANTAMAB [Suspect]
     Active Substance: AMIVANTAMAB
     Indication: Non-small cell lung cancer metastatic
     Route: 042
     Dates: start: 20211216, end: 20220223
  2. MINOCYCLINE HYDROCHLORIDE [Concomitant]
     Active Substance: MINOCYCLINE HYDROCHLORIDE
     Indication: Rash
     Route: 048
     Dates: start: 20211216
  3. MINOCYCLINE HYDROCHLORIDE [Concomitant]
     Active Substance: MINOCYCLINE HYDROCHLORIDE
     Indication: Paronychia
     Route: 048
     Dates: start: 20220127, end: 20220310
  4. MINOCYCLINE HYDROCHLORIDE [Concomitant]
     Active Substance: MINOCYCLINE HYDROCHLORIDE
     Route: 048
     Dates: start: 20220311, end: 20220427
  5. MINOCYCLINE HYDROCHLORIDE [Concomitant]
     Active Substance: MINOCYCLINE HYDROCHLORIDE
     Route: 048
     Dates: start: 20220427, end: 20220601
  6. MINOCYCLINE HYDROCHLORIDE [Concomitant]
     Active Substance: MINOCYCLINE HYDROCHLORIDE
     Route: 048
     Dates: start: 20220611
  7. NIFEDIPINE [Concomitant]
     Active Substance: NIFEDIPINE
     Indication: Hypertension
     Route: 048
     Dates: start: 20220209, end: 20220227
  8. NIFEDIPINE [Concomitant]
     Active Substance: NIFEDIPINE
     Dosage: CONTROLLED-RELEASE TABLETS
     Route: 048
     Dates: start: 20220227
  9. NIFEDIPINE [Concomitant]
     Active Substance: NIFEDIPINE
     Route: 048
     Dates: start: 20220227
  10. MUPIROCIN [Concomitant]
     Active Substance: MUPIROCIN
     Indication: Paronychia
     Route: 050
     Dates: start: 20220210
  11. MUPIROCIN [Concomitant]
     Active Substance: MUPIROCIN
     Indication: Generalised oedema
     Route: 061
     Dates: start: 20220519
  12. MUPIROCIN [Concomitant]
     Active Substance: MUPIROCIN
     Indication: Perineal rash
     Route: 061
     Dates: start: 20220611, end: 20220611
  13. MUPIROCIN [Concomitant]
     Active Substance: MUPIROCIN
     Route: 061
     Dates: start: 20220613, end: 20220613
  14. MUPIROCIN [Concomitant]
     Active Substance: MUPIROCIN
     Route: 061
     Dates: start: 20220615
  15. DESONIDE [Concomitant]
     Active Substance: DESONIDE
     Indication: Rash
     Route: 050
     Dates: start: 20220210
  16. OXYGEN [Concomitant]
     Active Substance: OXYGEN
     Indication: Snoring
     Dosage: LOW FLOW
     Route: 055
     Dates: start: 20220210, end: 20220210
  17. OXYGEN [Concomitant]
     Active Substance: OXYGEN
     Indication: Hypoxia
     Dosage: LOW FLOW
     Route: 055
     Dates: start: 20220223, end: 20220223

REACTIONS (2)
  - Pulmonary embolism [Recovered/Resolved]
  - Generalised oedema [Not Recovered/Not Resolved]

NARRATIVE: CASE EVENT DATE: 20220223
